FAERS Safety Report 8913573 (Version 1)
Quarter: 2012Q4

REPORT INFORMATION
  Report Type: 
  Country: US (occurrence: US)
  Receive Date: 20121119
  Receipt Date: 20121119
  Transmission Date: 20130627
  Serious: No
  Sender: FDA-Public Use
  Company Number: US-JNJFOC-20121107567

PATIENT
  Age: 22 Year
  Sex: Female
  Weight: 144.7 kg

DRUGS (7)
  1. INVEGA SUSTENNA [Suspect]
     Indication: SCHIZOPHRENIA
     Dosage: every 3-4 weeks.
     Route: 030
     Dates: start: 201206
  2. INVEGA SUSTENNA [Suspect]
     Indication: SCHIZOPHRENIA
     Route: 030
  3. INVEGA SUSTENNA [Suspect]
     Indication: SCHIZOPHRENIA
     Dosage: every 3-4 weeks
     Route: 030
     Dates: start: 2009, end: 201110
  4. LATUDA [Suspect]
     Indication: SCHIZOPHRENIA
     Route: 065
     Dates: start: 201110, end: 201206
  5. LORAZEPAM [Concomitant]
     Indication: SLEEP DISORDER
     Dosage: as needed.
     Route: 048
  6. BENZTROPINE [Concomitant]
     Indication: EXTRAPYRAMIDAL DISORDER
     Route: 048
  7. RISPERDAL M TABLETS [Concomitant]
     Indication: SCHIZOPHRENIA
     Dosage: as needed
     Route: 048

REACTIONS (2)
  - Drug dose omission [Not Recovered/Not Resolved]
  - Psychotic disorder [Unknown]
